FAERS Safety Report 10194805 (Version 3)
Quarter: 2016Q1

REPORT INFORMATION
  Report Type: Report from Study
  Country: US (occurrence: US)
  Receive Date: 20140526
  Receipt Date: 20160226
  Transmission Date: 20160525
  Serious: Yes (Other)
  Sender: FDA-Public Use
  Company Number: US-AMGEN INC.-USASP2014038257

PATIENT
  Age: 67 Year
  Sex: Male

DRUGS (2)
  1. ENBREL [Suspect]
     Active Substance: ETANERCEPT
     Indication: PSORIATIC ARTHROPATHY
  2. ENBREL [Suspect]
     Active Substance: ETANERCEPT
     Indication: RHEUMATOID ARTHRITIS
     Dosage: 50 MG, QWK
     Route: 065
     Dates: start: 19990101

REACTIONS (5)
  - Dementia [Not Recovered/Not Resolved]
  - Pain [Unknown]
  - Parkinson^s disease [Not Recovered/Not Resolved]
  - Coronary artery bypass [Unknown]
  - Skin cancer [Unknown]

NARRATIVE: CASE EVENT DATE: 2008
